FAERS Safety Report 23897453 (Version 1)
Quarter: 2024Q2

REPORT INFORMATION
  Report Type: Report from Study
  Country: US (occurrence: US)
  Receive Date: 20240524
  Receipt Date: 20240524
  Transmission Date: 20240716
  Serious: Yes (Hospitalization)
  Sender: FDA-Public Use
  Company Number: US-ABBVIE-5771207

PATIENT
  Sex: Male

DRUGS (2)
  1. SKYRIZI [Suspect]
     Active Substance: RISANKIZUMAB-RZAA
     Indication: Crohn^s disease
     Dosage: FORM STRENGTH: 360 MILLIGRAM
     Route: 058
     Dates: start: 20240206
  2. SKYRIZI [Suspect]
     Active Substance: RISANKIZUMAB-RZAA
     Indication: Crohn^s disease
     Dosage: FORM STRENGTH: 600 MILLIGRAM
     Route: 042
     Dates: start: 20231009, end: 20231209

REACTIONS (6)
  - Sepsis [Not Recovered/Not Resolved]
  - Pyrexia [Not Recovered/Not Resolved]
  - Vascular device infection [Not Recovered/Not Resolved]
  - Hyperhidrosis [Unknown]
  - Blood glucose decreased [Unknown]
  - Malaise [Not Recovered/Not Resolved]

NARRATIVE: CASE EVENT DATE: 20240515
